FAERS Safety Report 15776705 (Version 3)
Quarter: 2019Q2

REPORT INFORMATION
  Report Type: Spontaneous
  Country: US (occurrence: US)
  Receive Date: 20181231
  Receipt Date: 20190605
  Transmission Date: 20190711
  Serious: No
  Sender: FDA-Public Use
  Company Number: US-PFIZER INC-2018534618

PATIENT
  Age: 81 Year
  Sex: Female

DRUGS (3)
  1. XGEVA [Concomitant]
     Active Substance: DENOSUMAB
     Dosage: UNK (EVERY 28 DAYS)
  2. FASLODEX [Concomitant]
     Active Substance: FULVESTRANT
     Dosage: UNK (EVERY 28 DAYS)
  3. IBRANCE [Suspect]
     Active Substance: PALBOCICLIB
     Indication: BREAST CANCER FEMALE
     Dosage: 125 MG, CYCLIC(125MG/DAY ON 21 OFF 7)
     Dates: start: 2018

REACTIONS (2)
  - Hypoacusis [Unknown]
  - Fatigue [Unknown]
